FAERS Safety Report 5203485-6 (Version None)
Quarter: 2007Q1

REPORT INFORMATION
  Report Type: 
  Country: None (occurrence: None)
  Receive Date: 20070110
  Receipt Date: 20070102
  Transmission Date: 20070707
  Serious: Yes (Hospitalization, Other)
  Sender: FDA-Public Use
  Company Number: GB-AVENTIS-200710064EU

PATIENT
  Age: 41 Year
  Sex: Female

DRUGS (1)
  1. ENOXAPARIN SODIUM [Suspect]
     Indication: ABORTION SPONTANEOUS
     Route: 058
     Dates: start: 20061114, end: 20061213

REACTIONS (5)
  - CRYING [None]
  - DRUG EXPOSURE DURING PREGNANCY [None]
  - HEADACHE [None]
  - INTRA-UTERINE DEATH [None]
  - NO THERAPEUTIC RESPONSE [None]
